FAERS Safety Report 10663387 (Version 7)
Quarter: 2015Q3

REPORT INFORMATION
  Report Type: Spontaneous
  Country: US (occurrence: US)
  Receive Date: 20141218
  Receipt Date: 20150914
  Transmission Date: 20151125
  Serious: Yes (Hospitalization, Other)
  Sender: FDA-Public Use
  Company Number: US-GLAXOSMITHKLINE-A1086748A

PATIENT

DRUGS (4)
  1. ADVAIR DISKUS [Suspect]
     Active Substance: FLUTICASONE PROPIONATE\SALMETEROL XINAFOATE
     Indication: DYSPNOEA
     Dosage: 230/21 MCG, AT ONE PUFF DAILY
     Route: 055
     Dates: start: 20130618
  2. ADVAIR DISKUS [Suspect]
     Active Substance: FLUTICASONE PROPIONATE\SALMETEROL XINAFOATE
     Dosage: 250/50 MCG,
     Dates: start: 200909
  3. ADVAIR DISKUS [Suspect]
     Active Substance: FLUTICASONE PROPIONATE\SALMETEROL XINAFOATE
     Indication: LUNG DISORDER
     Dosage: 115/21 MCG,
     Dates: start: 201006
  4. ADVAIR DISKUS [Suspect]
     Active Substance: FLUTICASONE PROPIONATE\SALMETEROL XINAFOATE
     Indication: LUNG DISORDER
     Dosage: 100/50 ?G, U
     Dates: start: 200901

REACTIONS (8)
  - Bronchitis [Recovering/Resolving]
  - Cough [Recovering/Resolving]
  - Pneumonia [Unknown]
  - Pyrexia [Recovering/Resolving]
  - Malaise [Recovering/Resolving]
  - Cardiac disorder [Unknown]
  - Drug ineffective [Unknown]
  - Lung disorder [Unknown]

NARRATIVE: CASE EVENT DATE: 201408
